FAERS Safety Report 9272622 (Version 1)
Quarter: 2013Q2

REPORT INFORMATION
  Report Type: Spontaneous
  Country: US (occurrence: US)
  Receive Date: 20130506
  Receipt Date: 20130506
  Transmission Date: 20140414
  Serious: No
  Sender: FDA-Public Use
  Company Number: US-ASTRAZENECA-2013SE28821

PATIENT
  Sex: Male

DRUGS (5)
  1. SYMBICORT [Suspect]
     Indication: ASTHMA
     Dosage: 160 2 PUFFS DAILY
     Route: 055
     Dates: start: 2012
  2. STRONG PRESCRIPTION MEDICATION FOR REFLUX [Concomitant]
     Indication: GASTROOESOPHAGEAL REFLUX DISEASE
     Dosage: UNKNOWN
  3. UNKNOWN [Concomitant]
     Indication: HYPERTENSION
     Dosage: NOT ASKED
  4. TYLENOL [Concomitant]
     Indication: HEADACHE
     Dosage: NOT ASKED
     Route: 048
  5. ADVIL [Concomitant]
     Indication: HEADACHE
     Dosage: NOT ASKED
     Route: 048

REACTIONS (6)
  - Nasal polyps [Unknown]
  - Sleep disorder due to general medical condition, insomnia type [Unknown]
  - Oropharyngeal pain [Unknown]
  - Headache [Unknown]
  - Hypertension [Unknown]
  - Off label use [Unknown]
